FAERS Safety Report 8427265-3 (Version None)
Quarter: 2012Q2

REPORT INFORMATION
  Report Type: 
  Country: None (occurrence: None)
  Receive Date: 20120611
  Receipt Date: 20120604
  Transmission Date: 20120825
  Serious: Yes (Life-Threatening, Hospitalization, Disabling, Other)
  Sender: FDA-Public Use
  Company Number: US-GLAXOSMITHKLINE-A0980061A

PATIENT
  Age: 71 Year
  Sex: Female

DRUGS (7)
  1. COUMADIN [Concomitant]
  2. HYDROCHLOROTHIAZIDE [Concomitant]
  3. PROMACTA [Suspect]
     Indication: IDIOPATHIC THROMBOCYTOPENIC PURPURA
     Route: 048
     Dates: start: 20120301
  4. LISINOPRIL [Concomitant]
  5. SYNTHROID [Concomitant]
  6. MULTI-VITAMINS [Concomitant]
  7. FISH OIL [Concomitant]

REACTIONS (8)
  - PLATELET COUNT INCREASED [None]
  - NASAL CONGESTION [None]
  - THROMBOSIS [None]
  - PYREXIA [None]
  - PRESYNCOPE [None]
  - INFLUENZA LIKE ILLNESS [None]
  - ABASIA [None]
  - ASTHENIA [None]
